FAERS Safety Report 17487021 (Version 7)
Quarter: 2025Q1

REPORT INFORMATION
  Report Type: Report from Study
  Country: US (occurrence: US)
  Receive Date: 20200303
  Receipt Date: 20250313
  Transmission Date: 20250408
  Serious: Yes (Other)
  Sender: TAKEDA
  Company Number: US-SHIRE-US202008261

PATIENT
  Age: 74 Year
  Sex: Female
  Weight: 73.9 kg

DRUGS (23)
  1. HUMAN IMMUNOGLOBULIN G\HYALURONIDASE RECOMBINANT HUMAN [Suspect]
     Active Substance: HUMAN IMMUNOGLOBULIN G\HYALURONIDASE (HUMAN RECOMBINANT)
     Indication: Primary immunodeficiency syndrome
  2. HUMAN IMMUNOGLOBULIN G\HYALURONIDASE RECOMBINANT HUMAN [Suspect]
     Active Substance: HUMAN IMMUNOGLOBULIN G\HYALURONIDASE (HUMAN RECOMBINANT)
     Indication: Immunodeficiency common variable
  3. HUMAN IMMUNOGLOBULIN G\HYALURONIDASE RECOMBINANT HUMAN [Suspect]
     Active Substance: HUMAN IMMUNOGLOBULIN G\HYALURONIDASE (HUMAN RECOMBINANT)
     Dosage: 35 GRAM, Q4WEEKS
     Dates: start: 20160507
  4. HUMAN IMMUNOGLOBULIN G\HYALURONIDASE RECOMBINANT HUMAN [Suspect]
     Active Substance: HUMAN IMMUNOGLOBULIN G\HYALURONIDASE (HUMAN RECOMBINANT)
     Dosage: 30 GRAM, Q4WEEKS
  5. ACETAMINOPHEN [Concomitant]
     Active Substance: ACETAMINOPHEN
  6. DIPHENHYDRAMINE [Concomitant]
     Active Substance: DIPHENHYDRAMINE
  7. SODIUM CHLORIDE [Concomitant]
     Active Substance: SODIUM CHLORIDE
  8. EPINEPHRINE [Concomitant]
     Active Substance: EPINEPHRINE
  9. LIDOCAINE [Concomitant]
     Active Substance: LIDOCAINE
  10. MINERALS\VITAMINS [Concomitant]
     Active Substance: MINERALS\VITAMINS
  11. OXYGEN [Concomitant]
     Active Substance: OXYGEN
  12. ATORVASTATIN [Concomitant]
     Active Substance: ATORVASTATIN
  13. ALBUTEROL\IPRATROPIUM [Concomitant]
     Active Substance: ALBUTEROL\IPRATROPIUM
  14. VICTOZA [Concomitant]
     Active Substance: LIRAGLUTIDE
  15. STIOLTO RESPIMAT [Concomitant]
     Active Substance: OLODATEROL HYDROCHLORIDE\TIOTROPIUM BROMIDE MONOHYDRATE
  16. ALBUTEROL SULFATE [Concomitant]
     Active Substance: ALBUTEROL SULFATE
  17. ASPIRIN [Concomitant]
     Active Substance: ASPIRIN
  18. ANORO ELLIPTA [Concomitant]
     Active Substance: UMECLIDINIUM BROMIDE\VILANTEROL TRIFENATATE
  19. ALBUTEROL [Concomitant]
     Active Substance: ALBUTEROL
  20. LIDOCAINE [Concomitant]
     Active Substance: LIDOCAINE
  21. ATORVASTATIN CALCIUM [Concomitant]
     Active Substance: ATORVASTATIN CALCIUM
  22. DIPHENHYDRAMINE HYDROCHLORIDE [Concomitant]
     Active Substance: DIPHENHYDRAMINE HYDROCHLORIDE
  23. VICTOZA [Concomitant]
     Active Substance: LIRAGLUTIDE

REACTIONS (15)
  - Pneumonia [Unknown]
  - Immunoglobulins decreased [Unknown]
  - Respiratory disorder [Unknown]
  - Seasonal allergy [Unknown]
  - Weight fluctuation [Unknown]
  - Infusion site discharge [Recovered/Resolved]
  - Needle issue [Recovered/Resolved]
  - Rhinitis [Unknown]
  - Injection site pain [Unknown]
  - Tremor [Unknown]
  - Dyspnoea [Recovering/Resolving]
  - Accidental exposure to product [Unknown]
  - Product leakage [Unknown]
  - Incorrect dose administered [Unknown]
  - Device malfunction [Unknown]

NARRATIVE: CASE EVENT DATE: 20200722
